FAERS Safety Report 5761298-0 (Version None)
Quarter: 2008Q2

REPORT INFORMATION
  Report Type: 
  Country: None (occurrence: None)
  Receive Date: 20080606
  Receipt Date: 20080603
  Transmission Date: 20081010
  Serious: Yes (Hospitalization, Other)
  Sender: FDA-Public Use
  Company Number: US-MERCK-0804USA02480

PATIENT
  Age: 72 Year
  Sex: Female

DRUGS (8)
  1. JANUVIA [Suspect]
     Indication: TYPE 2 DIABETES MELLITUS
     Route: 048
     Dates: start: 20071205, end: 20080401
  2. ALAVERT [Concomitant]
     Route: 065
  3. CLONAZEPAM [Concomitant]
     Route: 065
  4. FUROSEMIDE SODIUM [Concomitant]
     Route: 065
  5. LANTUS [Concomitant]
     Route: 065
  6. LEXAPRO [Concomitant]
     Route: 065
  7. NORVASC [Concomitant]
     Route: 065
  8. ULTRAM [Concomitant]
     Route: 065

REACTIONS (1)
  - BLOOD CREATININE INCREASED [None]
